FAERS Safety Report 5635403-0 (Version None)
Quarter: 2008Q1

REPORT INFORMATION
  Report Type: 
  Country: None (occurrence: None)
  Receive Date: 20080222
  Receipt Date: 20080212
  Transmission Date: 20080703
  Serious: Yes (Other)
  Sender: FDA-Public Use
  Company Number: AU-PFIZER INC-2008013836

PATIENT
  Age: 78 Year
  Sex: Male

DRUGS (4)
  1. CADUET [Suspect]
     Indication: HYPERTENSION
     Dosage: TEXT:10 MG/10 MG-FREQ:DAILY
  2. CADUET [Suspect]
     Indication: LIPIDS INCREASED
  3. NORVASC [Suspect]
  4. KARVEA [Concomitant]

REACTIONS (1)
  - RENAL IMPAIRMENT [None]
